FAERS Safety Report 8785272 (Version 2)
Quarter: 2014Q2

REPORT INFORMATION
  Report Type: Spontaneous
  Country: GB (occurrence: GB)
  Receive Date: 20120914
  Receipt Date: 20131101
  Transmission Date: 20141212
  Serious: Yes (Other)
  Sender: FDA-Public Use
  Company Number: GB-MERCK-1209GBR002053

PATIENT
  Age: 37 Year
  Sex: Male

DRUGS (3)
  1. ESMERON [Suspect]
     Indication: NEUROMUSCULAR BLOCKADE
     Dosage: 30 MG, UNK
     Route: 042
     Dates: start: 20120823, end: 20120823
  2. FENTANYL [Concomitant]
  3. PROPOFOL [Concomitant]

REACTIONS (4)
  - Urticaria [Recovered/Resolved]
  - Wheezing [Unknown]
  - Bronchospasm [Recovered/Resolved]
  - Erythema [Recovered/Resolved]
